FAERS Safety Report 6023014-7 (Version None)
Quarter: 2008Q4

REPORT INFORMATION
  Report Type: 
  Country: None (occurrence: None)
  Receive Date: 20081230
  Receipt Date: 20081223
  Transmission Date: 20090506
  Serious: Yes (Hospitalization)
  Sender: FDA-Public Use
  Company Number: US-ASTRAZENECA-2008UW27127

PATIENT
  Age: 66 Year
  Sex: Female
  Weight: 104.3 kg

DRUGS (10)
  1. SYMBICORT [Suspect]
     Indication: ASTHMA
     Dosage: 160/4.5 UG 2 PUFFS BID
     Route: 055
     Dates: start: 20081027, end: 20081129
  2. PULMICORT FLEXHALER [Suspect]
     Indication: ASTHMA
     Route: 055
     Dates: start: 20081126, end: 20081202
  3. SPIRIVA [Suspect]
     Indication: ASTHMA
     Route: 065
     Dates: start: 20081126, end: 20081202
  4. ALBUTEROL WITH HFA [Suspect]
     Route: 055
  5. DIAZIDE [Concomitant]
  6. CORGARD [Concomitant]
  7. ALLEGRA [Concomitant]
  8. NEXIUM [Concomitant]
     Route: 048
  9. POTASSIUM CHLORIDE [Concomitant]
  10. ASPIRIN [Concomitant]

REACTIONS (9)
  - ASTHENIA [None]
  - CHEST DISCOMFORT [None]
  - DYSPNOEA [None]
  - FEELING ABNORMAL [None]
  - LIP SWELLING [None]
  - SWOLLEN TONGUE [None]
  - TREMOR [None]
  - URTICARIA [None]
  - WHEEZING [None]
